FAERS Safety Report 10072102 (Version 1)
Quarter: 2014Q2

REPORT INFORMATION
  Report Type: Spontaneous
  Country: US (occurrence: None)
  Receive Date: 20140410
  Receipt Date: 20140410
  Transmission Date: 20141212
  Serious: Yes (Other)
  Sender: FDA-Public Use
  Company Number: None

PATIENT
  Age: 39 Year
  Sex: Female
  Weight: 90.72 kg

DRUGS (1)
  1. BUPROPION XL [Suspect]
     Indication: DEPRESSION
     Dosage: 1 TABLET
     Route: 048
     Dates: start: 20140301, end: 20140408

REACTIONS (6)
  - Product quality issue [None]
  - Drug effect decreased [None]
  - Irritability [None]
  - Mood swings [None]
  - Depression [None]
  - Product substitution issue [None]
